FAERS Safety Report 5743861-6 (Version None)
Quarter: 2008Q2

REPORT INFORMATION
  Report Type: 
  Country: None (occurrence: None)
  Receive Date: 20080519
  Receipt Date: 20080519
  Transmission Date: 20081010
  Serious: No
  Sender: FDA-Public Use
  Company Number: None

PATIENT
  Age: 58 Year
  Sex: Male
  Weight: 76.2043 kg

DRUGS (2)
  1. SEPTOCAINE [Suspect]
     Indication: ENDODONTIC PROCEDURE
     Dosage: 1 CARPULE ONE TIME DENTAL
     Route: 004
  2. SEPTOCAINE [Suspect]
     Indication: LOCAL ANAESTHESIA
     Dosage: 1 CARPULE ONE TIME DENTAL
     Route: 004

REACTIONS (4)
  - DYSGEUSIA [None]
  - GLOSSODYNIA [None]
  - PARAESTHESIA ORAL [None]
  - TONGUE DISORDER [None]
